FAERS Safety Report 11096101 (Version 1)
Quarter: 2015Q2

REPORT INFORMATION
  Report Type: Report from Study
  Country: BR (occurrence: BR)
  Receive Date: 20150507
  Receipt Date: 20150507
  Transmission Date: 20150821
  Serious: Yes (Hospitalization)
  Sender: FDA-Public Use
  Company Number: BR-ROCHE-1470815

PATIENT
  Sex: Male

DRUGS (9)
  1. DOXYCYCLINE. [Concomitant]
     Active Substance: DOXYCYCLINE
  2. CLARITHROMYCIN. [Concomitant]
     Active Substance: CLARITHROMYCIN
  3. CIPROFLOXACIN. [Concomitant]
     Active Substance: CIPROFLOXACIN
  4. FLUIMUCIL [Concomitant]
     Active Substance: ACETYLCYSTEINE
  5. AMIKACIN [Concomitant]
     Active Substance: AMIKACIN
  6. VITAMIN E [Concomitant]
     Active Substance: .ALPHA.-TOCOPHEROL
  7. PROTOVIT [Concomitant]
  8. SALBUTAMOL [Concomitant]
     Active Substance: ALBUTEROL
  9. PULMOZYME [Suspect]
     Active Substance: DORNASE ALFA
     Indication: CYSTIC FIBROSIS
     Route: 065

REACTIONS (4)
  - Gastrointestinal disorder [Unknown]
  - Pyrexia [Unknown]
  - Cough [Unknown]
  - Post procedural infection [Unknown]
